FAERS Safety Report 5128212-2 (Version None)
Quarter: 2006Q4

REPORT INFORMATION
  Report Type: 
  Country: None (occurrence: None)
  Receive Date: 20061011
  Receipt Date: 20060925
  Transmission Date: 20070319
  Serious: Yes (Other)
  Sender: FDA-Public Use
  Company Number: 2006122268

PATIENT
  Age: 3 Year
  Sex: Female

DRUGS (2)
  1. ZARONTIN SYRUP [Suspect]
     Indication: EPILEPSY
     Dosage: 10 ML (5 ML, 2 IN 1 D), ORAL
     Route: 048
     Dates: start: 20060101
  2. VALPROATE SODIUM [Suspect]

REACTIONS (7)
  - ABNORMAL BEHAVIOUR [None]
  - AGGRESSION [None]
  - ANAEMIA [None]
  - ANOREXIA [None]
  - BLOOD IRON DECREASED [None]
  - INSOMNIA [None]
  - VOMITING [None]
